FAERS Safety Report 9359455 (Version 1)
Quarter: 2013Q2

REPORT INFORMATION
  Report Type: Other
  Country: CA (occurrence: CA)
  Receive Date: 20130620
  Receipt Date: 20130620
  Transmission Date: 20140414
  Serious: Yes (Other)
  Sender: FDA-Public Use
  Company Number: CA-FRI-1000046012

PATIENT
  Age: 77 Year
  Sex: Male

DRUGS (12)
  1. DILTIAZEM [Suspect]
     Dosage: 120 MG
  2. FUROSEMIDE [Suspect]
     Indication: RIGHT VENTRICULAR FAILURE
     Dosage: 120 MG
     Route: 042
  3. FUROSEMIDE [Suspect]
     Dosage: 240 MG
     Route: 048
  4. SILDENAFIL [Suspect]
     Dosage: 60 MG
     Route: 048
  5. ASPIRIN [Concomitant]
     Dosage: 81 MG
  6. CLOPIDOGREL [Concomitant]
     Dosage: 75 MG
  7. ATORVASTATIN [Concomitant]
     Dosage: 40 MG
  8. FLUTICASONE/SALMETEROL [Concomitant]
     Dosage: 250/125 MCG  TWICE DAILY
     Route: 055
  9. TIOTROPIUM [Concomitant]
     Dosage: 18 MCG
     Route: 055
  10. ACETYLCYSTEINE [Concomitant]
     Dosage: 1800 MG
  11. DOMPERIDONE [Concomitant]
     Dosage: 20 MG
  12. VITAMIN B-12 [Concomitant]

REACTIONS (1)
  - Ototoxicity [Recovered/Resolved]
